FAERS Safety Report 4358318-7 (Version None)
Quarter: 2004Q2

REPORT INFORMATION
  Report Type: 
  Country: None (occurrence: None)
  Receive Date: 20040514
  Receipt Date: 20040507
  Transmission Date: 20050107
  Serious: Yes (Hospitalization)
  Sender: FDA-Public Use
  Company Number: US-MERCK-0405USA00532

PATIENT
  Age: 44 Year
  Sex: Male

DRUGS (1)
  1. PROPECIA [Suspect]
     Indication: HIRSUTISM
     Route: 048
     Dates: start: 20000101

REACTIONS (2)
  - DIZZINESS [None]
  - HEADACHE [None]
